FAERS Safety Report 20175810 (Version 1)
Quarter: 2021Q4

REPORT INFORMATION
  Report Type: Spontaneous
  Country: US (occurrence: None)
  Receive Date: 20211212
  Receipt Date: 20211212
  Transmission Date: 20220304
  Serious: Yes (Hospitalization)
  Sender: FDA-Public Use
  Company Number: None

PATIENT
  Age: 83 Year
  Sex: Male
  Weight: 97 kg

DRUGS (1)
  1. ITRACONAZOLE [Suspect]
     Active Substance: ITRACONAZOLE
     Indication: Chronic pulmonary histoplasmosis
     Dosage: FREQUENCY : DAILY;?
     Route: 048
     Dates: start: 20180212, end: 20211127

REACTIONS (2)
  - Cardiac failure congestive [None]
  - Acute myocardial infarction [None]

NARRATIVE: CASE EVENT DATE: 20211127
